FAERS Safety Report 7026351-2 (Version None)
Quarter: 2010Q4

REPORT INFORMATION
  Report Type: 
  Country: None (occurrence: None)
  Receive Date: 20101004
  Receipt Date: 20100922
  Transmission Date: 20110411
  Serious: Yes (Hospitalization)
  Sender: FDA-Public Use
  Company Number: US-ELI_LILLY_AND_COMPANY-US201009006684

PATIENT
  Sex: Female

DRUGS (2)
  1. HUMULIN R [Suspect]
     Indication: DIABETES MELLITUS
     Dosage: UNK, AS NEEDED
     Dates: start: 20070201
  2. HUMULIN 70/30 [Suspect]
     Indication: DIABETES MELLITUS
     Dosage: 16 U, 2/D
     Dates: start: 19900101

REACTIONS (15)
  - ARTERIAL DISORDER [None]
  - ARTERIAL OCCLUSIVE DISEASE [None]
  - BONE DISORDER [None]
  - CONSTIPATION [None]
  - GASTRIC DISORDER [None]
  - HOSPITALISATION [None]
  - HYPERKERATOSIS [None]
  - INTESTINAL PERFORATION [None]
  - LOCALISED INFECTION [None]
  - MOBILITY DECREASED [None]
  - PAIN IN EXTREMITY [None]
  - PRURITUS [None]
  - SKIN DISCOLOURATION [None]
  - VENOUS INSUFFICIENCY [None]
  - VENOUS OCCLUSION [None]
